FAERS Safety Report 10143022 (Version 1)
Quarter: 2014Q2

REPORT INFORMATION
  Report Type: Spontaneous
  Country: US (occurrence: US)
  Receive Date: 20140430
  Receipt Date: 20140430
  Transmission Date: 20141212
  Serious: Yes (Other)
  Sender: FDA-Public Use
  Company Number: US-PFIZER INC-2014118397

PATIENT
  Sex: Male

DRUGS (3)
  1. XANAX [Suspect]
     Dosage: 5 MG, 3X/DAY
  2. XANAX [Suspect]
     Dosage: 10 MG, 3X/DAY
  3. ALLOPURINOL [Concomitant]
     Indication: GOUT
     Dosage: UNK

REACTIONS (3)
  - Convulsion [Unknown]
  - Skull fracture [Unknown]
  - Fall [Unknown]
